FAERS Safety Report 8293762-7 (Version None)
Quarter: 2012Q2

REPORT INFORMATION
  Report Type: 
  Country: None (occurrence: None)
  Receive Date: 20120413
  Receipt Date: 20120403
  Transmission Date: 20120825
  Serious: Yes (Hospitalization)
  Sender: FDA-Public Use
  Company Number: 2012-001343

PATIENT
  Age: 74 Year
  Sex: Female

DRUGS (1)
  1. ACTONEL [Suspect]
     Dosage: 35 MG UNKNOWN, ORAL
     Route: 048
     Dates: start: 20050101

REACTIONS (5)
  - EAR DISORDER [None]
  - HYPERHIDROSIS [None]
  - VERTIGO [None]
  - VOMITING [None]
  - DIZZINESS [None]
